FAERS Safety Report 19990076 (Version 1)
Quarter: 2021Q4

REPORT INFORMATION
  Report Type: Spontaneous
  Country: DE (occurrence: DE)
  Receive Date: 20211025
  Receipt Date: 20211025
  Transmission Date: 20220303
  Serious: Yes (Life-Threatening, Hospitalization, Disabling)
  Sender: FDA-Public Use
  Company Number: DE-PEI-202100206321

PATIENT
  Age: 31 Year
  Sex: Male
  Weight: 80 kg

DRUGS (1)
  1. PEMBROLIZUMAB [Suspect]
     Active Substance: PEMBROLIZUMAB
     Indication: Malignant melanoma stage III
     Dosage: 1 DOSAGE FORM
     Dates: start: 20210419

REACTIONS (1)
  - Thyroiditis [Not Recovered/Not Resolved]
